FAERS Safety Report 17604751 (Version 1)
Quarter: 2020Q1

REPORT INFORMATION
  Report Type: Report from Study
  Country: US (occurrence: US)
  Receive Date: 20200331
  Receipt Date: 20200331
  Transmission Date: 20200409
  Serious: Yes (Other)
  Sender: FDA-Public Use
  Company Number: US-HORIZON-KRY-0435-2020

PATIENT
  Age: 53 Year
  Sex: Female

DRUGS (1)
  1. KRYSTEXXA [Suspect]
     Active Substance: PEGLOTICASE
     Indication: PRODUCT USED FOR UNKNOWN INDICATION
     Route: 042

REACTIONS (6)
  - Swelling [Unknown]
  - Vomiting [Unknown]
  - Nausea [Unknown]
  - Vomiting [Unknown]
  - Chest pain [Unknown]
  - Mouth swelling [Unknown]

NARRATIVE: CASE EVENT DATE: 20200317
